FAERS Safety Report 18947012 (Version 1)
Quarter: 2021Q1

REPORT INFORMATION
  Report Type: Report from Study
  Country: IT (occurrence: IT)
  Receive Date: 20210226
  Receipt Date: 20210226
  Transmission Date: 20210420
  Serious: Yes (Hospitalization)
  Sender: FDA-Public Use
  Company Number: IT-TEVA-2021-IT-1883367

PATIENT
  Age: 54 Year
  Sex: Male

DRUGS (3)
  1. CISPLATINO TEVA [Suspect]
     Active Substance: CISPLATIN
     Dates: start: 20200611, end: 20200929
  2. ALIMTA [Suspect]
     Active Substance: PEMETREXED DISODIUM
     Indication: LUNG CANCER METASTATIC
     Dosage: 500 MG/M2
     Route: 042
     Dates: start: 20200611, end: 20200929
  3. KEYTRUDA [Suspect]
     Active Substance: PEMBROLIZUMAB
     Indication: LUNG CANCER METASTATIC
     Route: 042
     Dates: start: 20200611, end: 20200929

REACTIONS (2)
  - Pancytopenia [Recovered/Resolved]
  - Gastroenteritis [Recovered/Resolved]

NARRATIVE: CASE EVENT DATE: 20201008
